FAERS Safety Report 9016909 (Version 1)
Quarter: 2013Q1

REPORT INFORMATION
  Report Type: Spontaneous
  Country: US (occurrence: None)
  Receive Date: 20130114
  Receipt Date: 20130114
  Transmission Date: 20140127
  Serious: Yes (Hospitalization)
  Sender: FDA-Public Use
  Company Number: DL2012-0867

PATIENT
  Age: 27 Year
  Sex: Female

DRUGS (3)
  1. MIFEPRISTONE [Suspect]
     Indication: ABORTION INDUCED
     Route: 048
     Dates: start: 20120524
  2. MISOPROSTOL [Suspect]
     Route: 002
     Dates: start: 20120525, end: 20120608
  3. DOXYCYCLINE [Concomitant]

REACTIONS (1)
  - Abortion incomplete [None]
